FAERS Safety Report 6321836-6 (Version None)
Quarter: 2009Q3

REPORT INFORMATION
  Report Type: 
  Country: None (occurrence: None)
  Receive Date: 20090821
  Receipt Date: 20090821
  Transmission Date: 20100115
  Serious: No
  Sender: FDA-Public Use
  Company Number: None

PATIENT
  Sex: Female
  Weight: 88.4514 kg

DRUGS (1)
  1. KAPIDEX [Suspect]
     Dosage: 1 CAPSULE QAM ORAL
     Route: 048
     Dates: start: 20090728

REACTIONS (1)
  - DYSPNOEA [None]
